FAERS Safety Report 23462357 (Version 3)
Quarter: 2024Q3

REPORT INFORMATION
  Report Type: Spontaneous
  Country: US (occurrence: US)
  Receive Date: 20240131
  Receipt Date: 20240909
  Transmission Date: 20241017
  Serious: Yes (Life-Threatening, Hospitalization, Other)
  Sender: BRISTOL MYERS SQUIBB
  Company Number: US-BRISTOL-MYERS SQUIBB COMPANY-2024-013073

PATIENT
  Age: 91 Year
  Sex: Female
  Weight: 54.9 kg

DRUGS (35)
  1. ELIQUIS [Suspect]
     Active Substance: APIXABAN
     Indication: Product used for unknown indication
  2. TYVASO [Suspect]
     Active Substance: TREPROSTINIL
     Indication: Pulmonary arterial hypertension
     Dosage: INHALATION
     Route: 050
     Dates: start: 202401
  3. TYVASO [Suspect]
     Active Substance: TREPROSTINIL
     Dosage: 5 BREATHS, INHALATION
     Route: 050
     Dates: start: 202402
  4. TYVASO [Suspect]
     Active Substance: TREPROSTINIL
     Dosage: 4 BREATHS, INHALATION
     Route: 050
     Dates: start: 20240126
  5. TYVASO [Suspect]
     Active Substance: TREPROSTINIL
     Dosage: INHALATION
     Route: 050
     Dates: start: 202401
  6. TYVASO [Suspect]
     Active Substance: TREPROSTINIL
     Dosage: 4 BREATHS, INHALATION
     Route: 050
     Dates: start: 202402
  7. TYVASO [Suspect]
     Active Substance: TREPROSTINIL
     Dosage: INHALATION
     Dates: start: 20240108
  8. TYVASO [Suspect]
     Active Substance: TREPROSTINIL
     Dosage: INHALATION
     Route: 050
     Dates: start: 202402
  9. TYVASO [Suspect]
     Active Substance: TREPROSTINIL
     Dosage: INHALATION
     Route: 050
     Dates: start: 202402
  10. TYVASO [Suspect]
     Active Substance: TREPROSTINIL
     Dosage: INHALATION
     Route: 050
     Dates: start: 2024
  11. TYVASO [Suspect]
     Active Substance: TREPROSTINIL
     Dosage: INHALATION
     Route: 050
     Dates: start: 2024
  12. TYVASO [Suspect]
     Active Substance: TREPROSTINIL
     Dosage: INHALATION
     Route: 050
     Dates: start: 2024
  13. TYVASO [Suspect]
     Active Substance: TREPROSTINIL
     Dosage: INHALATION
     Route: 050
     Dates: start: 2024
  14. TYVASO [Suspect]
     Active Substance: TREPROSTINIL
     Dosage: INHALATION
     Route: 050
     Dates: start: 2024
  15. TYVASO [Suspect]
     Active Substance: TREPROSTINIL
     Dosage: UNK (RESTARTED), INHALATION
     Route: 050
     Dates: start: 2024
  16. TYVASO [Suspect]
     Active Substance: TREPROSTINIL
     Dosage: INHALATION
     Route: 050
     Dates: start: 2024
  17. TYVASO [Suspect]
     Active Substance: TREPROSTINIL
     Dosage: UNK (RESTARTED), INHALATION
     Route: 050
     Dates: start: 202405
  18. TYVASO [Suspect]
     Active Substance: TREPROSTINIL
     Dosage: INHALATION
     Route: 050
     Dates: start: 202405
  19. ZOLOFT [Suspect]
     Active Substance: SERTRALINE HYDROCHLORIDE
     Indication: Depression
     Dates: start: 20240102
  20. ZOLOFT [Suspect]
     Active Substance: SERTRALINE HYDROCHLORIDE
     Dates: start: 20240110
  21. COENZYME Q10 [Concomitant]
     Active Substance: DIETARY SUPPLEMENT\UBIDECARENONE
     Indication: Product used for unknown indication
  22. POTASSIUM CHLORIDE [Concomitant]
     Active Substance: POTASSIUM CHLORIDE
     Indication: Product used for unknown indication
  23. SILDENAFIL CITRATE [Concomitant]
     Active Substance: SILDENAFIL CITRATE
     Indication: Product used for unknown indication
  24. VITAMIN D3 [Concomitant]
     Active Substance: CHOLECALCIFEROL
     Indication: Product used for unknown indication
  25. OXYGEN [Concomitant]
     Active Substance: OXYGEN
     Indication: Product used for unknown indication
  26. ACETAMINOPHEN [Concomitant]
     Active Substance: ACETAMINOPHEN
     Indication: Product used for unknown indication
  27. OMEPRAZOLE [Concomitant]
     Active Substance: OMEPRAZOLE
     Indication: Product used for unknown indication
  28. FERROUS SULFATE [Concomitant]
     Active Substance: FERROUS SULFATE
     Indication: Product used for unknown indication
  29. TORSEMIDE [Concomitant]
     Active Substance: TORSEMIDE
     Indication: Product used for unknown indication
  30. ESTRADIOL [Concomitant]
     Active Substance: ESTRADIOL
     Indication: Product used for unknown indication
  31. LIDOCAINE HYDROCHLORIDE [Concomitant]
     Active Substance: LIDOCAINE HYDROCHLORIDE
     Indication: Product used for unknown indication
  32. PRILOCAINE [Concomitant]
     Active Substance: PRILOCAINE
     Indication: Product used for unknown indication
  33. HYDROCODONE BITARTRATE AND ACETAMINOPHEN [Concomitant]
     Active Substance: ACETAMINOPHEN\HYDROCODONE BITARTRATE
     Indication: Product used for unknown indication
  34. CREON [Concomitant]
     Active Substance: PANCRELIPASE AMYLASE\PANCRELIPASE LIPASE\PANCRELIPASE PROTEASE
     Indication: Product used for unknown indication
  35. TUMS [Concomitant]
     Active Substance: CALCIUM CARBONATE
     Indication: Product used for unknown indication

REACTIONS (31)
  - Dizziness [Unknown]
  - Asthenia [Not Recovered/Not Resolved]
  - Fatigue [Unknown]
  - Throat irritation [Recovered/Resolved]
  - Depression [Unknown]
  - Headache [Unknown]
  - Unresponsive to stimuli [Unknown]
  - Tricuspid valve incompetence [Unknown]
  - Fluid retention [Not Recovered/Not Resolved]
  - Atrial fibrillation [Unknown]
  - Blood pressure decreased [Not Recovered/Not Resolved]
  - Cough [Unknown]
  - Nocturnal dyspnoea [Unknown]
  - Eye movement disorder [Unknown]
  - Head titubation [Unknown]
  - Gait disturbance [Unknown]
  - Blood sodium decreased [Unknown]
  - Blood potassium decreased [Unknown]
  - Herpes zoster [Not Recovered/Not Resolved]
  - Dehydration [Unknown]
  - Otolithiasis [Unknown]
  - Somnolence [Unknown]
  - Urinary tract infection [Unknown]
  - Oral candidiasis [Unknown]
  - Rash [Unknown]
  - Oedema [Unknown]
  - Dyspnoea [Unknown]
  - Urticaria [Unknown]
  - Heart rate increased [Unknown]
  - Diarrhoea [Unknown]
  - Gastrointestinal pain [Unknown]

NARRATIVE: CASE EVENT DATE: 20240101
